FAERS Safety Report 5274959-7 (Version None)
Quarter: 2007Q1

REPORT INFORMATION
  Report Type: 
  Country: None (occurrence: None)
  Receive Date: 20061207
  Receipt Date: 20050726
  Transmission Date: 20070707
  Serious: Yes (Other)
  Sender: FDA-Public Use
  Company Number: 2005UW09548

PATIENT
  Age: 52 Year
  Sex: Female
  Weight: 59.4212 kg

DRUGS (7)
  1. TOPROL-XL [Suspect]
     Indication: HYPERTENSION
     Dosage: 250 MG QD PO
     Route: 048
     Dates: start: 20050314, end: 20050620
  2. WELLBUTRIN [Concomitant]
  3. SYNTHROID [Concomitant]
  4. NASACORT [Concomitant]
  5. ALLEGRA D 24 HOUR [Concomitant]
  6. FOSAMAX [Concomitant]
  7. TOPAMAX [Concomitant]

REACTIONS (10)
  - FATIGUE [None]
  - FIBROMYALGIA [None]
  - FLUID RETENTION [None]
  - INCORRECT DOSE ADMINISTERED [None]
  - JOINT SWELLING [None]
  - OEDEMA PERIPHERAL [None]
  - PAIN [None]
  - PAIN IN EXTREMITY [None]
  - SOMNOLENCE [None]
  - WEIGHT INCREASED [None]
